FAERS Safety Report 4450429-0 (Version None)
Quarter: 2004Q3

REPORT INFORMATION
  Report Type: 
  Country: None (occurrence: None)
  Receive Date: 20040915
  Receipt Date: 20040902
  Transmission Date: 20050211
  Serious: Yes (Hospitalization)
  Sender: FDA-Public Use
  Company Number: 2004CG01714

PATIENT
  Age: 60 Year
  Sex: Male
  Weight: 65 kg

DRUGS (13)
  1. MOPRAL [Suspect]
     Dates: start: 20040611, end: 20040705
  2. LASIX [Suspect]
     Dosage: 40 MG DAILY PO
     Route: 048
     Dates: start: 20040526, end: 20040710
  3. ALDACTONE [Suspect]
     Dosage: 25MG QD PO
     Route: 048
     Dates: start: 20040601
  4. SOLUDACTONE [Suspect]
     Dosage: 400 MG BID IV
     Route: 042
     Dates: start: 20040601
  5. FOZIRETIC [Suspect]
     Dosage: 10 MG BID PO
     Route: 048
     Dates: start: 20040601
  6. ASPIRIN [Concomitant]
  7. COVERSYL [Concomitant]
  8. NITRODERM [Concomitant]
  9. IMOVANE [Concomitant]
  10. DIFFU K [Concomitant]
  11. DOBUTAMINE [Concomitant]
  12. MAGNE-B6 [Concomitant]
  13. SINTROM [Concomitant]

REACTIONS (17)
  - ANAEMIA [None]
  - ANTINUCLEAR ANTIBODY POSITIVE [None]
  - AORTIC DISORDER [None]
  - CARDIAC FAILURE [None]
  - COMPLEMENT FACTOR C4 DECREASED [None]
  - COMPLEMENT FACTOR DECREASED [None]
  - DRUG RASH WITH EOSINOPHILIA AND SYSTEMIC SYMPTOMS [None]
  - ECZEMA [None]
  - ENTEROBACTER INFECTION [None]
  - FACE OEDEMA [None]
  - GRAFT COMPLICATION [None]
  - LOCALISED OEDEMA [None]
  - NEPHROPATHY [None]
  - PARAKERATOSIS [None]
  - RENAL IMPAIRMENT [None]
  - STAPHYLOCOCCAL SEPSIS [None]
  - TOXOCARIASIS [None]
